FAERS Safety Report 15357941 (Version 1)
Quarter: 2018Q3

REPORT INFORMATION
  Report Type: Spontaneous
  Country: DE (occurrence: DE)
  Receive Date: 20180906
  Receipt Date: 20180906
  Transmission Date: 20181010
  Serious: Yes (Hospitalization)
  Sender: FDA-Public Use
  Company Number: PHHY2018DE091020

PATIENT
  Sex: Male

DRUGS (10)
  1. DOXORUBICINE [Suspect]
     Active Substance: DOXORUBICIN
     Indication: B-CELL LYMPHOMA
     Dosage: 100 MG, QD
     Route: 042
     Dates: start: 20180801, end: 20180801
  2. VINCRISTINE [Suspect]
     Active Substance: VINCRISTINE
     Indication: B-CELL LYMPHOMA
     Dosage: 3.46 MG, QD
     Route: 042
     Dates: start: 20180801, end: 20180801
  3. PIPERACILLIN [Concomitant]
     Active Substance: PIPERACILLIN
     Indication: ACUTE KIDNEY INJURY
     Dosage: UNK
     Route: 065
  4. CYCLOPHOSPHAMIDE. [Suspect]
     Active Substance: CYCLOPHOSPHAMIDE
     Indication: B-CELL LYMPHOMA
     Dosage: 1550 MG, UNK
     Route: 042
     Dates: start: 20180801, end: 20180801
  5. PIPERACILLIN [Concomitant]
     Active Substance: PIPERACILLIN
     Indication: ACUTE KIDNEY INJURY
  6. PIPERACILLIN [Concomitant]
     Active Substance: PIPERACILLIN
     Indication: CHILLS
     Dosage: 13.5 G, TID
     Route: 042
     Dates: start: 20180514
  7. PREDNISONE. [Suspect]
     Active Substance: PREDNISONE
     Indication: B-CELL LYMPHOMA
     Dosage: 100 MG, QD
     Route: 048
     Dates: start: 20180801, end: 20180805
  8. PIPERACILLIN [Concomitant]
     Active Substance: PIPERACILLIN
     Indication: PYREXIA
     Dosage: UNK
     Route: 065
  9. RITUXIMAB. [Suspect]
     Active Substance: RITUXIMAB
     Indication: B-CELL LYMPHOMA
     Dosage: 780 MG, QD
     Route: 042
     Dates: start: 20180730, end: 20180730
  10. PEGFILGRASTIM [Suspect]
     Active Substance: PEGFILGRASTIM
     Indication: B-CELL LYMPHOMA
     Dosage: 6 MG, QD
     Route: 058
     Dates: start: 20180805, end: 20180805

REACTIONS (2)
  - Pyrexia [Not Recovered/Not Resolved]
  - Acute kidney injury [Not Recovered/Not Resolved]

NARRATIVE: CASE EVENT DATE: 20180814
